FAERS Safety Report 10010092 (Version 1)
Quarter: 2014Q1

REPORT INFORMATION
  Report Type: Spontaneous
  Country: US (occurrence: US)
  Receive Date: 20140312
  Receipt Date: 20140312
  Transmission Date: 20141002
  Serious: Yes (Other)
  Sender: FDA-Public Use
  Company Number: US-INCYTE CORPORATION-2013IN001657

PATIENT
  Sex: Female
  Weight: 48.98 kg

DRUGS (13)
  1. JAKAFI [Suspect]
     Dosage: 5 MG, BID
     Route: 048
  2. LASIX [Concomitant]
     Dosage: 20 MG, UNK
  3. GABAPENTIN [Concomitant]
     Dosage: 100 MG, UNK
  4. LEVOTHYROXINE [Concomitant]
     Dosage: 100 MCG, UNK
  5. ALLOPURINOL [Concomitant]
     Dosage: 100 MG, UNK
  6. PRAVACOL [Concomitant]
     Dosage: 10 MG, UNK
  7. METOPROLOL [Concomitant]
     Dosage: 100 MG, UNK
  8. XANAX [Concomitant]
     Dosage: 0.5 MG, UNK
  9. POTASSIUM [Concomitant]
     Dosage: 25 MEQ, UNK
  10. VITAMIN B12 [Concomitant]
     Dosage: 1000  CR, UNK, UNK
  11. VITAMIN D [Concomitant]
     Dosage: 1000 UT, UNK
  12. ARANESP [Concomitant]
     Dosage: 100 MCG, UNK
  13. ISOSORBIDE DINITRATE [Concomitant]
     Dosage: 10 MG, UNK

REACTIONS (3)
  - Platelet count decreased [Unknown]
  - White blood cell count increased [None]
  - Urinary tract infection [None]
